FAERS Safety Report 5441162-7 (Version None)
Quarter: 2007Q3

REPORT INFORMATION
  Report Type: 
  Country: None (occurrence: None)
  Receive Date: 20070831
  Receipt Date: 20070820
  Transmission Date: 20080115
  Serious: Yes (Hospitalization)
  Sender: FDA-Public Use
  Company Number: AU-PFIZER INC-2007069626

PATIENT
  Sex: Female

DRUGS (7)
  1. LYRICA [Suspect]
     Indication: NECK PAIN
     Dosage: DAILY DOSE:75MG-FREQ:AT NIGHT
     Dates: start: 20070716, end: 20070820
  2. LYRICA [Suspect]
     Indication: BACK PAIN
  3. CLONAZEPAM [Suspect]
  4. DIAZEPAM [Suspect]
  5. STILNOX [Concomitant]
  6. PANADOL [Concomitant]
  7. NUROFEN [Concomitant]

REACTIONS (8)
  - BLADDER DISORDER [None]
  - DRUG WITHDRAWAL SYNDROME [None]
  - HYPOAESTHESIA [None]
  - INSOMNIA [None]
  - MALAISE [None]
  - MUSCLE TIGHTNESS [None]
  - MUSCULAR WEAKNESS [None]
  - SPEECH DISORDER [None]
